FAERS Safety Report 5098733-X (Version None)
Quarter: 2006Q3

REPORT INFORMATION
  Report Type: 
  Country: None (occurrence: None)
  Receive Date: 20060905
  Receipt Date: 20060828
  Transmission Date: 20061208
  Serious: Yes (Hospitalization)
  Sender: FDA-Public Use
  Company Number: 2006SP003135

PATIENT
  Age: 34 Year
  Sex: Female

DRUGS (8)
  1. LUNESTA [Suspect]
     Indication: INSOMNIA
     Dosage: SEE IMAGE, ORAL
     Route: 048
     Dates: start: 20060701, end: 20060701
  2. LUNESTA [Suspect]
     Indication: INSOMNIA
     Dosage: SEE IMAGE, ORAL
     Route: 048
     Dates: start: 20060730, end: 20060730
  3. ZYBAN [Concomitant]
  4. ALCOHOL [Concomitant]
  5. CYMBALTA [Concomitant]
  6. ANTI-ANXIETY MEDICATION [Concomitant]
  7. LEXAPRO [Concomitant]
  8. TYLENOL PM [Concomitant]

REACTIONS (9)
  - ALCOHOL USE [None]
  - DYSSTASIA [None]
  - LOSS OF CONSCIOUSNESS [None]
  - MYDRIASIS [None]
  - OVERDOSE [None]
  - PUPIL FIXED [None]
  - ROAD TRAFFIC ACCIDENT [None]
  - SPEECH DISORDER [None]
  - SUICIDE ATTEMPT [None]
